FAERS Safety Report 7918289-0 (Version None)
Quarter: 2011Q4

REPORT INFORMATION
  Report Type: 
  Country: None (occurrence: None)
  Receive Date: 20111116
  Receipt Date: 20111108
  Transmission Date: 20120403
  Serious: Yes (Hospitalization)
  Sender: FDA-Public Use
  Company Number: US-GLAXOSMITHKLINE-B0762867A

PATIENT
  Age: 65 Year
  Sex: Female
  Weight: 61 kg

DRUGS (3)
  1. TOPOTECAN [Suspect]
     Indication: ADENOCARCINOMA OF THE CERVIX
     Route: 042
     Dates: start: 20110510
  2. BEVACIZUMAB [Suspect]
     Indication: ADENOCARCINOMA OF THE CERVIX
     Route: 042
     Dates: start: 20110510
  3. PACLITAXEL [Suspect]
     Indication: ADENOCARCINOMA OF THE CERVIX
     Route: 042
     Dates: start: 20110510

REACTIONS (2)
  - DEHYDRATION [None]
  - HYPOTENSION [None]
